FAERS Safety Report 15891162 (Version 1)
Quarter: 2019Q1

REPORT INFORMATION
  Report Type: Spontaneous
  Country: GB (occurrence: GB)
  Receive Date: 20190130
  Receipt Date: 20190130
  Transmission Date: 20190417
  Serious: Yes (Death, Other)
  Sender: FDA-Public Use
  Company Number: GB-MYLANLABS-2019M1008206

PATIENT
  Age: 45 Year
  Sex: Female

DRUGS (1)
  1. ACAMPROSATE [Suspect]
     Active Substance: ACAMPROSATE
     Indication: ALCOHOLISM
     Dosage: UNSPECIFIED DOSAGE FOR ONE WEEK FOLLOWING INPATIENT DETOX IN JUNE 2017.
     Dates: start: 201706

REACTIONS (1)
  - Hepatic failure [Fatal]
